FAERS Safety Report 7362455-2 (Version None)
Quarter: 2011Q1

REPORT INFORMATION
  Report Type: 
  Country: None (occurrence: None)
  Receive Date: 20110318
  Receipt Date: 20100623
  Transmission Date: 20110831
  Serious: Yes (Life-Threatening)
  Sender: FDA-Public Use
  Company Number: JP-ASTRAZENECA-2010SE07010

PATIENT
  Age: 268 Month
  Sex: Female
  Weight: 44 kg

DRUGS (16)
  1. DOMPERIDONE [Concomitant]
     Route: 048
     Dates: start: 20051212, end: 20051213
  2. NEO-MINOPHAGEN C [Concomitant]
     Indication: HYPERSENSITIVITY
     Dates: start: 20051216
  3. CIMETIDINE [Concomitant]
     Indication: ANTIALLERGIC THERAPY
     Dates: start: 20051215, end: 20060112
  4. URSO 250 [Concomitant]
     Indication: BLOOD ALKALINE PHOSPHATASE INCREASED
     Route: 048
     Dates: start: 20051219, end: 20060112
  5. TEPRENONE [Concomitant]
     Route: 048
     Dates: start: 20051212, end: 20051213
  6. DIPHENHYDRAMINE HYDROCHLORIDE [Concomitant]
     Indication: ANTIALLERGIC THERAPY
     Dates: start: 20051215
  7. PREDONINE [Concomitant]
     Route: 048
     Dates: start: 20051227, end: 20060102
  8. FOSMICIN [Concomitant]
     Indication: LEUKOCYTOSIS
     Route: 041
     Dates: start: 20051215, end: 20051216
  9. MEROPEN [Suspect]
     Indication: LEUKOCYTOSIS
     Route: 042
     Dates: start: 20051212, end: 20051214
  10. TOLEDOMIN [Suspect]
     Route: 048
     Dates: start: 20051001
  11. LANSOPRAZOLE [Concomitant]
     Route: 048
     Dates: start: 20060113
  12. SOLU-MEDROL [Concomitant]
     Indication: EOSINOPHILIA
     Dates: start: 20051217, end: 20051219
  13. PREDONINE [Concomitant]
     Route: 048
     Dates: start: 20060111
  14. PREDONINE [Concomitant]
     Route: 048
     Dates: start: 20060103, end: 20060110
  15. LANSOPRAZOLE [Concomitant]
     Indication: GASTROINTESTINAL MUCOSAL DISORDER
     Route: 048
     Dates: start: 20051212, end: 20051213
  16. PREDONINE [Concomitant]
     Indication: EOSINOPHILIA
     Route: 048
     Dates: start: 20051219, end: 20051226

REACTIONS (1)
  - DRUG HYPERSENSITIVITY [None]
